FAERS Safety Report 9742957 (Version 2)
Quarter: 2013Q4

REPORT INFORMATION
  Report Type: Spontaneous
  Country: US (occurrence: US)
  Receive Date: 20131210
  Receipt Date: 20131210
  Transmission Date: 20140711
  Serious: No
  Sender: FDA-Public Use
  Company Number: US-TEVA-429595USA

PATIENT
  Sex: Female

DRUGS (1)
  1. BUDESONIDE [Suspect]
     Indication: SINUSITIS

REACTIONS (8)
  - Local swelling [Unknown]
  - Neck pain [Unknown]
  - Ear pain [Unknown]
  - Drug prescribing error [Unknown]
  - Sinusitis [Unknown]
  - Oropharyngeal pain [Unknown]
  - Drug administration error [Unknown]
  - Blood pressure increased [Unknown]
